FAERS Safety Report 7372389-5 (Version None)
Quarter: 2011Q1

REPORT INFORMATION
  Report Type: 
  Country: None (occurrence: None)
  Receive Date: 20110316
  Receipt Date: 20110301
  Transmission Date: 20110831
  Serious: Yes (Other)
  Sender: FDA-Public Use
  Company Number: 2009S1005988

PATIENT
  Age: 54 Year
  Sex: Male
  Weight: 112.4 kg

DRUGS (10)
  1. LIPITOR [Concomitant]
  2. LORAZEPAM [Concomitant]
  3. LORTAB [Concomitant]
  4. COUMADIN [Concomitant]
  5. AMITRIPTYLINE [Concomitant]
  6. NORVASC [Concomitant]
  7. ATENOLOL [Concomitant]
  8. LISINOPRIL [Concomitant]
  9. PHOSPHOSODA FLAVOR NOT SPECIFIED [Suspect]
     Indication: CONSTIPATION
     Dosage: QD;PO
     Route: 048
     Dates: start: 20070911, end: 20080307
  10. METHOCARBAMOL [Concomitant]

REACTIONS (4)
  - RENAL FAILURE CHRONIC [None]
  - ACUTE PHOSPHATE NEPHROPATHY [None]
  - RENAL FAILURE ACUTE [None]
  - BLOOD PRESSURE INADEQUATELY CONTROLLED [None]
